FAERS Safety Report 17282292 (Version 1)
Quarter: 2020Q1

REPORT INFORMATION
  Report Type: Spontaneous
  Country: US (occurrence: US)
  Receive Date: 20200116
  Receipt Date: 20200116
  Transmission Date: 20200409
  Serious: No
  Sender: FDA-Public Use
  Company Number: None

PATIENT
  Age: 26 Year
  Sex: Female
  Weight: 104.9 kg

DRUGS (3)
  1. INFLIXIMAB-ABDA [Suspect]
     Active Substance: INFLIXIMAB-ABDA
     Indication: HIDRADENITIS
     Dosage: ?          OTHER FREQUENCY:EVERY 2 MONTHS;?
     Route: 042
     Dates: start: 20170222, end: 20200115
  2. DIPHENHYDRAMINE. [Concomitant]
     Active Substance: DIPHENHYDRAMINE
     Dates: start: 20170222
  3. ACETAMINOPHEN. [Concomitant]
     Active Substance: ACETAMINOPHEN
     Dates: start: 20170222

REACTIONS (6)
  - Dyspnoea [None]
  - Abdominal pain [None]
  - Infusion related reaction [None]
  - Oxygen saturation decreased [None]
  - Flushing [None]
  - Swelling face [None]

NARRATIVE: CASE EVENT DATE: 20200115
